FAERS Safety Report 24932309 (Version 1)
Quarter: 2025Q1

REPORT INFORMATION
  Report Type: Spontaneous
  Country: US (occurrence: US)
  Receive Date: 20250205
  Receipt Date: 20250205
  Transmission Date: 20250409
  Serious: No
  Sender: EXELIXIS
  Company Number: US-EXELIXIS-CABO-24080248

PATIENT
  Age: 48 Year
  Sex: Male

DRUGS (3)
  1. CABOMETYX [Suspect]
     Active Substance: CABOZANTINIB S-MALATE
     Indication: Non-small cell lung cancer
     Dosage: 40 MG, QD
  2. CABOMETYX [Suspect]
     Active Substance: CABOZANTINIB S-MALATE
  3. CABOMETYX [Suspect]
     Active Substance: CABOZANTINIB S-MALATE
     Dosage: 40 MG, QD

REACTIONS (3)
  - Drug intolerance [Unknown]
  - Therapy partial responder [Unknown]
  - Off label use [Unknown]
